FAERS Safety Report 8543232-3 (Version None)
Quarter: 2012Q3

REPORT INFORMATION
  Report Type: 
  Country: None (occurrence: None)
  Receive Date: 20120727
  Receipt Date: 20120716
  Transmission Date: 20120928
  Serious: Yes (Hospitalization)
  Sender: FDA-Public Use
  Company Number: US-BAYER-2011-112555

PATIENT
  Age: 29 Year
  Sex: Female
  Weight: 87.528 kg

DRUGS (17)
  1. DIAZEPAM [Concomitant]
  2. TUSSIONEX [Concomitant]
  3. DAYQUIL [DEXTROMET HBR,GUAIF,PARACET,PSEUDOEPH HCL] [Concomitant]
  4. PROAIR HFA [Concomitant]
  5. NYQUIL [Concomitant]
  6. YAZ [Suspect]
     Indication: CONTRACEPTION
     Dosage: UNK
     Dates: start: 20090820, end: 20091102
  7. ASCORBIC ACID [Concomitant]
     Dosage: UNK UNK, PRN
  8. ALPRAZOLAM [Concomitant]
     Indication: ANXIETY
  9. ALBUTEROL [Concomitant]
  10. LIPITOR [Concomitant]
  11. PRAVASTATIN [Concomitant]
     Indication: BLOOD CHOLESTEROL INCREASED
  12. YAZ [Suspect]
  13. PREVACID [Concomitant]
     Indication: GASTROOESOPHAGEAL REFLUX DISEASE
  14. AZITHROMYCIN [Concomitant]
  15. PSEUDOEPHEDRINE HCL [Concomitant]
  16. NSAID'S [Concomitant]
     Dosage: UNK, PRN
  17. YAZ [Suspect]
     Indication: PREMENSTRUAL SYNDROME

REACTIONS (2)
  - ANXIETY [None]
  - CEREBROVASCULAR ACCIDENT [None]
